FAERS Safety Report 24378245 (Version 1)
Quarter: 2024Q3

REPORT INFORMATION
  Report Type: Spontaneous
  Country: US (occurrence: US)
  Receive Date: 20240930
  Receipt Date: 20240930
  Transmission Date: 20241017
  Serious: No
  Sender: BIONPHARMA
  Company Number: US-Bion-013908

PATIENT
  Sex: Female

DRUGS (2)
  1. CETIRIZINE [Suspect]
     Active Substance: CETIRIZINE HYDROCHLORIDE
     Indication: Nasal congestion
     Dosage: ONE LIQUID GEL
  2. CETIRIZINE [Suspect]
     Active Substance: CETIRIZINE HYDROCHLORIDE
     Indication: Rhinorrhoea
     Dosage: ONE LIQUID GEL

REACTIONS (2)
  - Intentional product misuse [Unknown]
  - Drug ineffective [Not Recovered/Not Resolved]
